FAERS Safety Report 9469578 (Version 2)
Quarter: 2013Q3

REPORT INFORMATION
  Report Type: Spontaneous
  Country: RS (occurrence: RS)
  Receive Date: 20130822
  Receipt Date: 20130902
  Transmission Date: 20140515
  Serious: Yes (Other)
  Sender: FDA-Public Use
  Company Number: RS-ROCHE-1264461

PATIENT
  Sex: 0

DRUGS (4)
  1. XELODA [Suspect]
     Indication: COLORECTAL CANCER
     Route: 065
  2. CYCLOPHOSPHAMIDE [Concomitant]
  3. METHOTREXATE [Concomitant]
  4. FLUOROURACIL [Concomitant]

REACTIONS (1)
  - Toxicity to various agents [Unknown]
